FAERS Safety Report 23530524 (Version 1)
Quarter: 2024Q1

REPORT INFORMATION
  Report Type: Report from Study
  Country: US (occurrence: US)
  Receive Date: 20240216
  Receipt Date: 20240216
  Transmission Date: 20240410
  Serious: Yes (Other)
  Sender: FDA-Public Use
  Company Number: US-ABBVIE-5632844

PATIENT
  Sex: Female

DRUGS (3)
  1. SKYRIZI [Suspect]
     Active Substance: RISANKIZUMAB-RZAA
     Indication: Psoriasis
     Dosage: FORM STRENGTH: 150 MILLIGRAM
     Route: 058
     Dates: start: 20240104
  2. SKYRIZI [Suspect]
     Active Substance: RISANKIZUMAB-RZAA
     Dosage: FORM STRENGTH: 150 MILLIGRAM
     Route: 058
     Dates: start: 20230907, end: 20230907
  3. SKYRIZI [Suspect]
     Active Substance: RISANKIZUMAB-RZAA
     Dosage: FORM STRENGTH: 150 MILLIGRAM
     Route: 058
     Dates: start: 202310, end: 202310

REACTIONS (10)
  - Polyp [Unknown]
  - Hyperhidrosis [Unknown]
  - Skin disorder [Unknown]
  - Chills [Unknown]
  - Skin disorder [Unknown]
  - Oropharyngeal pain [Unknown]
  - Psoriasis [Recovering/Resolving]
  - Unevaluable event [Unknown]
  - Fatigue [Unknown]
  - Temperature regulation disorder [Unknown]
